FAERS Safety Report 5967627-7 (Version None)
Quarter: 2008Q4

REPORT INFORMATION
  Report Type: 
  Country: None (occurrence: None)
  Receive Date: 20081126
  Receipt Date: 20081117
  Transmission Date: 20090506
  Serious: Yes (Hospitalization)
  Sender: FDA-Public Use
  Company Number: PHHY2008FR29047

PATIENT

DRUGS (4)
  1. TEGRETOL [Suspect]
     Dosage: 400 MG
     Route: 048
     Dates: end: 20080902
  2. TEGRETOL [Suspect]
     Route: 048
  3. URBANYL [Concomitant]
  4. LAMICTAL ^BURROUGHS WELLCOME^ [Concomitant]

REACTIONS (2)
  - HALLUCINATION, VISUAL [None]
  - STATUS EPILEPTICUS [None]
